FAERS Safety Report 17022804 (Version 5)
Quarter: 2024Q1

REPORT INFORMATION
  Report Type: Report from Study
  Country: AR (occurrence: AR)
  Receive Date: 20191112
  Receipt Date: 20240311
  Transmission Date: 20240410
  Serious: Yes (Hospitalization, Other)
  Sender: FDA-Public Use
  Company Number: NVSC2019AR030574

PATIENT
  Age: 9 Year
  Sex: Male

DRUGS (10)
  1. ILARIS [Suspect]
     Active Substance: CANAKINUMAB
     Indication: Still^s disease
     Dosage: 150 MG, QMO
     Route: 058
     Dates: start: 20100326
  2. ILARIS [Suspect]
     Active Substance: CANAKINUMAB
     Dosage: 150 MG (EVERY 34 DAYS)
     Route: 065
     Dates: start: 201908, end: 20191008
  3. ILARIS [Suspect]
     Active Substance: CANAKINUMAB
     Dosage: 150 MG (EVERY 30 DAYS)
     Route: 065
     Dates: start: 20191008
  4. HYDROCORTISONE [Concomitant]
     Active Substance: HYDROCORTISONE
     Indication: Product used for unknown indication
     Dosage: UNK
     Route: 065
  5. FOLIC ACID [Concomitant]
     Active Substance: FOLIC ACID
     Indication: Product used for unknown indication
     Dosage: UNK
     Route: 065
  6. METHOTREXATE [Concomitant]
     Active Substance: METHOTREXATE
     Indication: Product used for unknown indication
     Dosage: UNK
     Route: 065
  7. OSTELIN [Concomitant]
     Indication: Product used for unknown indication
     Dosage: UNK
     Route: 065
  8. CEFAZOLIN [Concomitant]
     Active Substance: CEFAZOLIN
     Indication: Product used for unknown indication
     Dosage: UNK
     Route: 042
  9. CLINDAMYCIN [Concomitant]
     Active Substance: CLINDAMYCIN
     Indication: Product used for unknown indication
     Dosage: UNK
     Route: 042
  10. SERUM 10 [Concomitant]
     Indication: Product used for unknown indication
     Dosage: UNK
     Route: 065

REACTIONS (14)
  - Arthropod bite [Recovered/Resolved]
  - Lymphadenopathy [Recovered/Resolved]
  - Cellulitis [Recovered/Resolved]
  - Pyrexia [Recovered/Resolved]
  - Blister [Recovered/Resolved]
  - Peripheral swelling [Recovered/Resolved]
  - Still^s disease [Not Recovered/Not Resolved]
  - Disease recurrence [Unknown]
  - Joint stiffness [Recovered/Resolved]
  - Arthralgia [Recovered/Resolved]
  - Decreased immune responsiveness [Recovered/Resolved]
  - Fear of animals [Not Recovered/Not Resolved]
  - Ear infection [Unknown]
  - Off label use [Unknown]

NARRATIVE: CASE EVENT DATE: 20190801
